FAERS Safety Report 5449008-8 (Version None)
Quarter: 2007Q3

REPORT INFORMATION
  Report Type: 
  Country: None (occurrence: None)
  Receive Date: 20070803
  Receipt Date: 20070524
  Transmission Date: 20080115
  Serious: No
  Sender: FDA-Public Use
  Company Number: 200711336BWH

PATIENT
  Age: 69 Year
  Sex: Male
  Weight: 72.5755 kg

DRUGS (14)
  1. NEXAVAR [Suspect]
     Indication: METASTASES TO LUNG
     Dosage: 400 MG, BID, ORAL
     Route: 048
     Dates: start: 20060201
  2. NEXAVAR [Suspect]
     Indication: METASTASES TO LYMPH NODES
     Dosage: 400 MG, BID, ORAL
     Route: 048
     Dates: start: 20060201
  3. NEXAVAR [Suspect]
     Indication: RENAL CELL CARCINOMA STAGE UNSPECIFIED
     Dosage: 400 MG, BID, ORAL
     Route: 048
     Dates: start: 20060201
  4. GLUCOSAMINE/CONTRITIM [Concomitant]
  5. GLIPIZIDE [Concomitant]
  6. ACTOS [Concomitant]
  7. ECOTRIN [Concomitant]
  8. LIPITOR [Concomitant]
  9. CARDIZEM [Concomitant]
  10. LANOXIN [Concomitant]
  11. ZETIA [Concomitant]
  12. LISINOPRIL [Concomitant]
  13. AVAPRO [Concomitant]
  14. TOPROL-XL [Concomitant]

REACTIONS (7)
  - CHOKING [None]
  - COUGH [None]
  - DRY THROAT [None]
  - DYSPHONIA [None]
  - GASTROOESOPHAGEAL REFLUX DISEASE [None]
  - RETCHING [None]
  - THROAT IRRITATION [None]
